FAERS Safety Report 7993641-6 (Version None)
Quarter: 2011Q4

REPORT INFORMATION
  Report Type: 
  Country: None (occurrence: None)
  Receive Date: 20111219
  Receipt Date: 20111216
  Transmission Date: 20120403
  Serious: Yes (Death)
  Sender: FDA-Public Use
  Company Number: US-ASTRAZENECA-2011SE76084

PATIENT
  Age: 33 Year
  Sex: Female

DRUGS (9)
  1. QUETIAPINE [Suspect]
     Route: 048
  2. LORATADINE [Suspect]
     Route: 048
  3. LAMOTRIGINE [Suspect]
     Route: 048
  4. PAROXETINE HCL [Suspect]
     Route: 048
  5. LITHIUM CARBONATE [Suspect]
     Route: 048
  6. DIPHENHYDRAMINE HCL [Suspect]
     Route: 048
  7. ACETAMINOPHEN/DEXTROMETHORPHAN/DECONGESTANT [Suspect]
     Route: 048
  8. TOPIRAMATE [Suspect]
     Route: 048
  9. ACETAMINOPHEN [Suspect]
     Route: 048

REACTIONS (2)
  - COMPLETED SUICIDE [None]
  - TOXICITY TO VARIOUS AGENTS [None]
